FAERS Safety Report 20239620 (Version 2)
Quarter: 2022Q1

REPORT INFORMATION
  Report Type: Spontaneous
  Country: ES (occurrence: ES)
  Receive Date: 20211228
  Receipt Date: 20220204
  Transmission Date: 20220423
  Serious: No
  Sender: FDA-Public Use
  Company Number: ES-UCBSA-2021060381

PATIENT
  Age: 41 Year
  Sex: Female

DRUGS (4)
  1. ROTIGOTINE [Suspect]
     Active Substance: ROTIGOTINE
     Indication: Parkinson^s disease
     Dosage: 1 MILLIGRAM
     Dates: start: 2013
  2. ROTIGOTINE [Suspect]
     Active Substance: ROTIGOTINE
     Dosage: 2 MILLIGRAM A DAY
     Dates: start: 201506
  3. ROTIGOTINE [Suspect]
     Active Substance: ROTIGOTINE
     Dosage: 3.15 MILLIGRAM
     Dates: end: 201609
  4. RASAGILINE [Concomitant]
     Active Substance: RASAGILINE
     Indication: Parkinson^s disease
     Dosage: 1 MILLIGRAM

REACTIONS (1)
  - Off label use [Unknown]
